FAERS Safety Report 10570156 (Version 1)
Quarter: 2014Q4

REPORT INFORMATION
  Report Type: Spontaneous
  Country: US (occurrence: None)
  Receive Date: 20141106
  Receipt Date: 20141106
  Transmission Date: 20150529
  Serious: Yes (Life-Threatening, Hospitalization)
  Sender: FDA-Public Use
  Company Number: None

PATIENT
  Age: 80 Year
  Sex: Male
  Weight: 86.18 kg

DRUGS (5)
  1. NILANDRON [Suspect]
     Active Substance: NILUTAMIDE
     Indication: PROSTATIC SPECIFIC ANTIGEN DECREASED
     Dosage: 150 MG, 1 TABLET, 1, MOUTH
     Route: 048
  2. ZOCOR [Concomitant]
     Active Substance: SIMVASTATIN
  3. BABY ASPRIN [Concomitant]
  4. NILANDRON [Suspect]
     Active Substance: NILUTAMIDE
     Indication: PROSTATE CANCER
     Dosage: 150 MG, 1 TABLET, 1, MOUTH
     Route: 048
  5. CALCIUM [Concomitant]
     Active Substance: CALCIUM

REACTIONS (3)
  - Pneumonia [None]
  - Asthenia [None]
  - Lung infection [None]

NARRATIVE: CASE EVENT DATE: 201408
